FAERS Safety Report 9360469 (Version 2)
Quarter: 2013Q3

REPORT INFORMATION
  Report Type: Report from Study
  Country: US (occurrence: US)
  Receive Date: 20130621
  Receipt Date: 20130719
  Transmission Date: 20140515
  Serious: Yes (Hospitalization)
  Sender: FDA-Public Use
  Company Number: US-GENZYME-LEUK-1000357

PATIENT
  Age: 49 Year
  Sex: Male

DRUGS (8)
  1. LEUKINE [Suspect]
     Indication: MALIGNANT MELANOMA
     Dosage: UNK
     Route: 065
     Dates: start: 20110802
  2. LEUKINE [Suspect]
     Dosage: UNK, CYCLE 31
     Route: 065
  3. LEUKINE [Suspect]
     Dosage: UNK
     Route: 065
  4. ATIVAN [Concomitant]
     Indication: ANXIETY
     Dosage: 0.5 MCG, PRN
     Route: 065
     Dates: start: 201103
  5. FISH OIL [Concomitant]
     Indication: SUPPLEMENTATION THERAPY
     Dosage: 2000 IU, QD
     Route: 065
     Dates: start: 20111025
  6. DILAUDID [Concomitant]
     Indication: PAIN
     Dosage: 4 MG, PRN
     Route: 065
     Dates: start: 20110719, end: 20120124
  7. FOLIC ACID [Concomitant]
     Indication: SUPPLEMENTATION THERAPY
     Dosage: 1 G, QD
     Route: 065
     Dates: start: 20110823
  8. VITAMIN D [Concomitant]
     Indication: SUPPLEMENTATION THERAPY
     Dosage: 4-5000 IU, QD
     Route: 065
     Dates: start: 20110822

REACTIONS (1)
  - Small intestinal obstruction [Recovered/Resolved]
